FAERS Safety Report 6052821-X (Version None)
Quarter: 2009Q1

REPORT INFORMATION
  Report Type: 
  Country: None (occurrence: None)
  Receive Date: 20090122
  Receipt Date: 20090108
  Transmission Date: 20090719
  Serious: Yes (Hospitalization)
  Sender: FDA-Public Use
  Company Number: KV200900061

PATIENT
  Age: 72 Year
  Sex: Male
  Weight: 95.2 kg

DRUGS (13)
  1. ISOSORBIDE MONONITRATE [Suspect]
     Indication: CARDIAC DISORDER
     Dosage: 60 MG, QD, ORAL
     Route: 048
  2. TOPROL-XL [Concomitant]
  3. LOZOL [Concomitant]
  4. FLOMAX /00889901/ (MORNIFLUMATE) [Concomitant]
  5. ELIGARD [Concomitant]
  6. LIPITOR [Concomitant]
  7. FLONASE [Concomitant]
  8. COQ10 (UBIDECARENONE) [Concomitant]
  9. NEXIUM [Concomitant]
  10. TRICOR /00499301/ (FENOFIBRATE) [Concomitant]
  11. ASPIRIN [Concomitant]
  12. POTASSIUM CHLORIDE [Concomitant]
  13. ZETIA [Concomitant]

REACTIONS (6)
  - EXTRASYSTOLES [None]
  - HYPOTENSION [None]
  - PRESYNCOPE [None]
  - PRODUCT QUALITY ISSUE [None]
  - VENTRICULAR EXTRASYSTOLES [None]
  - VENTRICULAR TACHYCARDIA [None]
